FAERS Safety Report 4455102-0 (Version None)
Quarter: 2004Q3

REPORT INFORMATION
  Report Type: 
  Country: None (occurrence: None)
  Receive Date: 20040917
  Receipt Date: 20040831
  Transmission Date: 20050211
  Serious: Yes (Hospitalization, Other)
  Sender: FDA-Public Use
  Company Number: US_0409105227

PATIENT
  Age: 55 Year
  Sex: Female
  Weight: 142 kg

DRUGS (4)
  1. HUMALOG [Suspect]
     Indication: DIABETES MELLITUS
     Dates: start: 20010901
  2. HUMULIN N [Suspect]
     Indication: DIABETES MELLITUS
     Dates: start: 20000101
  3. ACTOS [Concomitant]
  4. LANTUS [Concomitant]

REACTIONS (8)
  - BLEEDING TIME ABNORMAL [None]
  - BLOOD GLUCOSE INCREASED [None]
  - CARCINOMA [None]
  - ENDOMETRIAL CANCER STAGE II [None]
  - FIBROMYALGIA [None]
  - INJECTION SITE HAEMORRHAGE [None]
  - PLATELET COUNT ABNORMAL [None]
  - RASH ERYTHEMATOUS [None]
